FAERS Safety Report 10380941 (Version 2)
Quarter: 2014Q3

REPORT INFORMATION
  Report Type: Spontaneous
  Country: FR (occurrence: FR)
  Receive Date: 20140813
  Receipt Date: 20140903
  Transmission Date: 20150326
  Serious: Yes (Death)
  Sender: FDA-Public Use
  Company Number: FR-SA-2014SA106085

PATIENT
  Age: 48 Year
  Sex: Female

DRUGS (8)
  1. ZYVOXID [Suspect]
     Active Substance: LINEZOLID
     Indication: FURUNCLE
     Route: 048
     Dates: start: 20140711, end: 20140718
  2. AMIKACIN [Suspect]
     Active Substance: AMIKACIN
     Indication: HYPERTHERMIA
     Route: 042
     Dates: start: 20140715, end: 20140716
  3. AUGMENTIN [Suspect]
     Active Substance: AMOXICILLIN\CLAVULANATE POTASSIUM
     Indication: FURUNCLE
     Route: 048
     Dates: start: 20140711, end: 20140715
  4. EVOLTRA [Suspect]
     Active Substance: CLOFARABINE
     Indication: STEM CELL TRANSPLANT
     Route: 042
     Dates: start: 20140717, end: 20140720
  5. ZYVOXID [Suspect]
     Active Substance: LINEZOLID
     Indication: FURUNCLE
     Route: 042
     Dates: start: 20140719, end: 20140722
  6. EVOLTRA [Suspect]
     Active Substance: CLOFARABINE
     Indication: STEM CELL TRANSPLANT
     Route: 042
     Dates: start: 20140717, end: 20140720
  7. TAZOCILLINE [Suspect]
     Active Substance: PIPERACILLIN SODIUM\TAZOBACTAM SODIUM
     Indication: HYPERTHERMIA
     Route: 042
     Dates: start: 20140715, end: 20140718
  8. CYTARABINE. [Suspect]
     Active Substance: CYTARABINE
     Indication: STEM CELL TRANSPLANT
     Route: 042
     Dates: start: 20140717, end: 20140720

REACTIONS (1)
  - Toxic epidermal necrolysis [Fatal]

NARRATIVE: CASE EVENT DATE: 20140718
